FAERS Safety Report 25022999 (Version 1)
Quarter: 2025Q1

REPORT INFORMATION
  Report Type: Report from Study
  Country: US (occurrence: US)
  Receive Date: 20250228
  Receipt Date: 20250228
  Transmission Date: 20250408
  Serious: Yes (Other)
  Sender: TAKEDA
  Company Number: US-TAKEDA-2024TUS130592

PATIENT
  Age: 57 Year
  Sex: Female

DRUGS (46)
  1. FRUQUINTINIB [Suspect]
     Active Substance: FRUQUINTINIB
     Indication: Colon cancer
  2. FRUQUINTINIB [Suspect]
     Active Substance: FRUQUINTINIB
  3. FRUQUINTINIB [Suspect]
     Active Substance: FRUQUINTINIB
  4. ALBUTEROL SULFATE [Concomitant]
     Active Substance: ALBUTEROL SULFATE
  5. AMLODIPINE [Concomitant]
     Active Substance: AMLODIPINE BESYLATE
  6. ANTACID [Concomitant]
     Active Substance: ALUMINUM HYDROXIDE\CALCIUM CARBONATE\DIMETHICONE\MAGNESIUM HYDROXIDE
  7. BACITRACIN [Concomitant]
     Active Substance: BACITRACIN
  8. BENZONATATE [Concomitant]
     Active Substance: BENZONATATE
  9. CLOBETASOL [Concomitant]
     Active Substance: CLOBETASOL
  10. CYCLOBENZAPRINE [Concomitant]
     Active Substance: CYCLOBENZAPRINE
  11. DEXAMETHASONE [Concomitant]
     Active Substance: DEXAMETHASONE
  12. DICLOFENAC SODIUM [Concomitant]
     Active Substance: DICLOFENAC SODIUM
  13. FENTANYL [Concomitant]
     Active Substance: FENTANYL
  14. GABAPENTIN [Concomitant]
     Active Substance: GABAPENTIN
  15. ACETAMINOPHEN\HYDROCODONE [Concomitant]
     Active Substance: ACETAMINOPHEN\HYDROCODONE
  16. HYDROCORTISONE [Concomitant]
     Active Substance: HYDROCORTISONE
  17. HYDROMORPHONE [Concomitant]
     Active Substance: HYDROMORPHONE
  18. HYDROXYZINE [Concomitant]
     Active Substance: HYDROXYZINE HYDROCHLORIDE
  19. HYOSCYAMINE [Concomitant]
     Active Substance: HYOSCYAMINE
  20. IBUPROFEN [Concomitant]
     Active Substance: IBUPROFEN
  21. KLOR-CON M20 [Concomitant]
     Active Substance: POTASSIUM CHLORIDE
  22. LIDOCAINE [Concomitant]
     Active Substance: LIDOCAINE
  23. LOMOTIL [Concomitant]
     Active Substance: ATROPINE SULFATE\DIPHENOXYLATE HYDROCHLORIDE
  24. LOPERAMIDE [Concomitant]
     Active Substance: LOPERAMIDE
  25. MEGESTROL ACETATE [Concomitant]
     Active Substance: MEGESTROL ACETATE
  26. METRONIDAZOLE [Concomitant]
     Active Substance: METRONIDAZOLE
  27. MINTOX [Concomitant]
     Active Substance: ALUMINUM HYDROXIDE\DIMETHICONE\MAGNESIUM HYDROXIDE
  28. NALOXONE [Concomitant]
     Active Substance: NALOXONE
  29. NEUPOGEN [Concomitant]
     Active Substance: FILGRASTIM
  30. OLANZAPINE [Concomitant]
     Active Substance: OLANZAPINE
  31. ONDANSETRON [Concomitant]
     Active Substance: ONDANSETRON
  32. OXYCODONE [Concomitant]
     Active Substance: OXYCODONE
  33. OXYCONTIN [Concomitant]
     Active Substance: OXYCODONE HYDROCHLORIDE
  34. PANTOPRAZOLE [Concomitant]
     Active Substance: PANTOPRAZOLE
  35. PEG-3350 AND ELECTROLYTES [Concomitant]
     Active Substance: POLYETHYLENE GLYCOL 3350\POTASSIUM CHLORIDE\SODIUM BICARBONATE\SODIUM CHLORIDE\SODIUM SULFATE
  36. POTASSIUM CHLORIDE [Concomitant]
     Active Substance: POTASSIUM CHLORIDE
  37. PROCHLORPERAZINE [Concomitant]
     Active Substance: PROCHLORPERAZINE
  38. Pyridoxine cox [Concomitant]
  39. SANCUSO [Concomitant]
     Active Substance: GRANISETRON
  40. SENNA AND DOCUSATE SODIUM [Concomitant]
     Active Substance: DOCUSATE SODIUM\SENNOSIDES
  41. SERTRALINE [Concomitant]
     Active Substance: SERTRALINE HYDROCHLORIDE
  42. SUCRALFATE [Concomitant]
     Active Substance: SUCRALFATE
  43. TRAMADOL [Concomitant]
     Active Substance: TRAMADOL
  44. VALACYCLOVIR [Concomitant]
     Active Substance: VALACYCLOVIR HYDROCHLORIDE
  45. VITAMIN B12 [Concomitant]
     Active Substance: CYANOCOBALAMIN
  46. VITAMIN D3 [Concomitant]
     Active Substance: CHOLECALCIFEROL

REACTIONS (4)
  - Colon cancer [Unknown]
  - Headache [Not Recovered/Not Resolved]
  - Bronchitis [Unknown]
  - Hypertension [Not Recovered/Not Resolved]

NARRATIVE: CASE EVENT DATE: 20250115
